FAERS Safety Report 14688076 (Version 2)
Quarter: 2019Q1

REPORT INFORMATION
  Report Type: Spontaneous
  Country: US (occurrence: US)
  Receive Date: 20180328
  Receipt Date: 20190222
  Transmission Date: 20190417
  Serious: No
  Sender: FDA-Public Use
  Company Number: US-PFIZER INC-2018127374

PATIENT
  Sex: Male

DRUGS (2)
  1. ADVIL LIQUI-GELS [Suspect]
     Active Substance: IBUPROFEN
     Indication: HEADACHE
     Dosage: UNK
     Dates: start: 20180221, end: 20180323
  2. ADVIL LIQUI-GELS [Suspect]
     Active Substance: IBUPROFEN
     Dosage: UNK, 4X/DAY (4 TIMES A DAY FOR 7 DAYS)

REACTIONS (1)
  - Drug ineffective [Unknown]

NARRATIVE: CASE EVENT DATE: 20180221
